FAERS Safety Report 23656903 (Version 1)
Quarter: 2024Q1

REPORT INFORMATION
  Report Type: Spontaneous
  Country: MA (occurrence: None)
  Receive Date: 20240321
  Receipt Date: 20240321
  Transmission Date: 20240410
  Serious: Yes (Other)
  Sender: FDA-Public Use
  Company Number: MA-ROCHE-3524090

PATIENT
  Sex: Female

DRUGS (1)
  1. OCREVUS [Suspect]
     Active Substance: OCRELIZUMAB
     Indication: Product used for unknown indication
     Route: 065

REACTIONS (6)
  - Cyanosis [Unknown]
  - Tachycardia [Unknown]
  - Bradycardia [Unknown]
  - Hypertension [Unknown]
  - Chills [Unknown]
  - Hypotension [Unknown]
